FAERS Safety Report 12447025 (Version 1)
Quarter: 2016Q2

REPORT INFORMATION
  Report Type: Spontaneous
  Country: US (occurrence: None)
  Receive Date: 20160607
  Receipt Date: 20160607
  Transmission Date: 20160815
  Serious: Yes (Other)
  Sender: FDA-Public Use
  Company Number: None

PATIENT
  Age: 64 Year
  Sex: Female
  Weight: 66.23 kg

DRUGS (5)
  1. VITAMINS [Concomitant]
     Active Substance: VITAMINS
  2. IBANDRONATE SODIUM. [Suspect]
     Active Substance: IBANDRONATE SODIUM
     Indication: OSTEOPOROSIS PROPHYLAXIS
     Dosage: 150MG 1 PILL ONCE-MONTHLY PACK BY MOUTH
     Route: 048
     Dates: start: 201001
  3. PRAVASTATIN [Concomitant]
     Active Substance: PRAVASTATIN\PRAVASTATIN SODIUM
  4. CALCIUM [Concomitant]
     Active Substance: CALCIUM
  5. PLUS VITAMIN D3 [Concomitant]

REACTIONS (2)
  - Basal cell carcinoma [None]
  - Groin pain [None]

NARRATIVE: CASE EVENT DATE: 20150831
